FAERS Safety Report 7038919-8 (Version None)
Quarter: 2010Q4

REPORT INFORMATION
  Report Type: 
  Country: None (occurrence: None)
  Receive Date: 20101012
  Receipt Date: 20101001
  Transmission Date: 20110411
  Serious: Yes (Hospitalization)
  Sender: FDA-Public Use
  Company Number: US-BAYER-US-2007-028571

PATIENT
  Age: 19 Year
  Sex: Female
  Weight: 55 kg

DRUGS (2)
  1. YASMIN [Suspect]
     Indication: PRODUCT USED FOR UNKNOWN INDICATION
     Dosage: 1 TAB(S), 1X/DAY [DAILY DOSE: 1 TAB(S)] [TOTAL DOSE: 1 TAB(S)]
     Route: 048
     Dates: start: 20070501, end: 20070701
  2. EFFEXOR [Concomitant]
     Dosage: UNK, UNK
     Dates: start: 20070727

REACTIONS (3)
  - BACK PAIN [None]
  - DYSPNOEA [None]
  - PULMONARY EMBOLISM [None]
